FAERS Safety Report 8195787 (Version 3)
Quarter: 2013Q3

REPORT INFORMATION
  Report Type: Report from Study
  Country: MX (occurrence: MX)
  Receive Date: 20111024
  Receipt Date: 20130711
  Transmission Date: 20140515
  Serious: Yes (Death, Hospitalization, Other)
  Sender: FDA-Public Use
  Company Number: PHHY2011MX92002

PATIENT
  Age: 82 Year
  Sex: Male

DRUGS (1)
  1. EXFORGE HCT [Suspect]
     Indication: HYPERTENSION
     Dosage: 1 TABLET (16 MG VALS,5MG AMLO, 12.5 MG HYDRO) DAILY
     Dates: start: 201109, end: 201111

REACTIONS (4)
  - Peritonitis [Fatal]
  - Haemorrhage [Unknown]
  - Renal injury [Not Recovered/Not Resolved]
  - Blood pressure increased [Not Recovered/Not Resolved]
